FAERS Safety Report 7615624-8 (Version None)
Quarter: 2011Q3

REPORT INFORMATION
  Report Type: 
  Country: None (occurrence: None)
  Receive Date: 20110711
  Receipt Date: 20110613
  Transmission Date: 20111222
  Serious: Yes (Death, Hospitalization)
  Sender: FDA-Public Use
  Company Number: 14572242

PATIENT
  Age: 72 Year
  Sex: Male

DRUGS (4)
  1. PLACEBO [Suspect]
     Indication: THROMBOSIS PROPHYLAXIS
     Route: 048
     Dates: start: 20081212, end: 20090511
  2. WARFARIN SODIUM [Suspect]
     Indication: THROMBOSIS PROPHYLAXIS
     Dosage: 2 MILLIGRAM 1 DAY
     Route: 048
     Dates: start: 20081212, end: 20090511
  3. METOPROLOL TARTRATE [Concomitant]
  4. INSULIN (INSULIN) [Concomitant]

REACTIONS (18)
  - LUNG INFECTION [None]
  - LUNG SQUAMOUS CELL CARCINOMA STAGE UNSPECIFIED [None]
  - PERICARDIAL EFFUSION [None]
  - RESPIRATORY FAILURE [None]
  - METASTASES TO LYMPH NODES [None]
  - HEPATIC CYST [None]
  - EMPHYSEMA [None]
  - DECREASED APPETITE [None]
  - ARTERIOSCLEROSIS CORONARY ARTERY [None]
  - DRUG EFFECT DECREASED [None]
  - METASTASES TO ADRENALS [None]
  - ATRIAL FIBRILLATION [None]
  - ADRENAL NEOPLASM [None]
  - PLEURAL EFFUSION [None]
  - BRONCHIECTASIS [None]
  - CHOLELITHIASIS [None]
  - CONDUCTION DISORDER [None]
  - METASTASES TO PLEURA [None]
